FAERS Safety Report 5518620-X (Version None)
Quarter: 2007Q4

REPORT INFORMATION
  Report Type: 
  Country: None (occurrence: None)
  Receive Date: 20071115
  Receipt Date: 20071107
  Transmission Date: 20080405
  Serious: Yes (Hospitalization, Other)
  Sender: FDA-Public Use
  Company Number: US-WYE-H01134607

PATIENT
  Sex: Female

DRUGS (6)
  1. PHENERGAN HCL [Suspect]
     Dosage: UNKNOWN
  2. SINGULAIR [Concomitant]
     Dosage: UNKNOWN
  3. ALBUTEROL [Concomitant]
     Dosage: MDI PRN, UNKNOWN DOSE
     Route: 055
  4. ZYRTEC [Concomitant]
     Dosage: UNKNOWN
  5. XOPENEX [Suspect]
     Indication: ASTHMA
     Dosage: ^1.25 UNK 1X ^
     Route: 055
     Dates: start: 20060901, end: 20060901
  6. DEMEROL [Suspect]
     Dosage: UNKNOWN

REACTIONS (2)
  - INTESTINAL OBSTRUCTION [None]
  - RESPIRATORY TRACT IRRITATION [None]
